FAERS Safety Report 26192833 (Version 1)
Quarter: 2025Q4

REPORT INFORMATION
  Report Type: Spontaneous
  Country: US (occurrence: US)
  Receive Date: 20251223
  Receipt Date: 20251223
  Transmission Date: 20260118
  Serious: Yes (Other)
  Sender: TEVA
  Company Number: US-TEVA-VS-3404778

PATIENT
  Age: 45 Year
  Sex: Female

DRUGS (4)
  1. CARBOPLATIN [Suspect]
     Active Substance: CARBOPLATIN
     Indication: Fallopian tube cancer
     Route: 065
     Dates: start: 202502
  2. CARBOPLATIN [Suspect]
     Active Substance: CARBOPLATIN
     Indication: Fallopian tube cancer
     Dosage: RECEIVED 6 CYCLES
     Route: 065
  3. PACLITAXEL [Concomitant]
     Active Substance: PACLITAXEL
     Indication: Fallopian tube cancer
     Route: 065
     Dates: start: 202502
  4. PACLITAXEL [Concomitant]
     Active Substance: PACLITAXEL
     Indication: Fallopian tube cancer
     Dosage: RECEIVED 6 CYCLES
     Route: 065

REACTIONS (5)
  - Throat tightness [Recovered/Resolved]
  - Drug hypersensitivity [Recovered/Resolved]
  - Pruritus [Recovered/Resolved]
  - Swelling face [Recovered/Resolved]
  - Hypotension [Recovered/Resolved]
